FAERS Safety Report 17157518 (Version 4)
Quarter: 2020Q2

REPORT INFORMATION
  Report Type: Spontaneous
  Country: JP (occurrence: JP)
  Receive Date: 20191216
  Receipt Date: 20200425
  Transmission Date: 20200713
  Serious: Yes (Death, Hospitalization, Other)
  Sender: FDA-Public Use
  Company Number: JP-AMGEN-JPNSP2019207933

PATIENT
  Age: 73 Year
  Sex: Female
  Weight: 58.7 kg

DRUGS (18)
  1. PARSABIV [Suspect]
     Active Substance: ETELCALCETIDE HYDROCHLORIDE
     Indication: HYPERPARATHYROIDISM SECONDARY
     Dosage: 5 MILLIGRAM, 3 TIMES/WK
     Route: 010
     Dates: start: 20190121, end: 20191116
  2. DOBUPUM [Concomitant]
     Active Substance: DOBUTAMINE HYDROCHLORIDE
     Indication: BLOOD PRESSURE DECREASED
     Dosage: 150MG/50ML, 5ML/H
     Route: 041
     Dates: start: 20191121, end: 20191126
  3. BOSMIN [EPINEPHRINE HYDROCHLORIDE] [Concomitant]
     Indication: BLOOD PRESSURE DECREASED
     Dosage: UNK, 5MG, 3.5ML/H
     Route: 041
     Dates: start: 20191121, end: 20191125
  4. RIONA [Concomitant]
     Active Substance: FERRIC CITRATE ANHYDROUS
     Dosage: 750 MG, Q12H(MORNING, EVENING)
     Route: 048
  5. EQUA [Concomitant]
     Active Substance: VILDAGLIPTIN
     Indication: DIABETES MELLITUS MANAGEMENT
     Dosage: 50 MG, EVERYDAY(MORNING)
     Route: 048
  6. PRECEDEX [Concomitant]
     Active Substance: DEXMEDETOMIDINE HYDROCHLORIDE
     Indication: ANALGESIC THERAPY
     Dosage: 200UG/50ML, 4ML/H
     Route: 041
     Dates: start: 20191120
  7. TAMOXIFEN [Concomitant]
     Active Substance: TAMOXIFEN
     Indication: BREAST CANCER
     Dosage: 20 MG, EVERYDAY(MORNING)
     Route: 048
  8. RIONA [Concomitant]
     Active Substance: FERRIC CITRATE ANHYDROUS
     Indication: HYPERPHOSPHATAEMIA
     Dosage: 750 MILLIGRAM, Q12H (MORNING, EVENING)
     Route: 048
  9. PRECIPITATED CALCIUM CARBONATE [Concomitant]
     Active Substance: CALCIUM CARBONATE
     Indication: HYPERPHOSPHATAEMIA
     Dosage: 1000 MILLIGRAM, Q12H (MORNING, EVENING)
     Route: 048
  10. ALFACALCIDOL [Concomitant]
     Active Substance: ALFACALCIDOL
     Dosage: 0.5 UG, EVERYDAY
     Route: 048
     Dates: end: 20190320
  11. MAXACALCITOL [Concomitant]
     Active Substance: MAXACALCITOL
     Dosage: UNK (5-2.5-5 UG)
     Route: 065
     Dates: start: 20190320, end: 20191116
  12. MAXACALCITOL [Concomitant]
     Active Substance: MAXACALCITOL
     Dosage: 5-2.5-5 UG
     Route: 065
     Dates: start: 20190321, end: 20191116
  13. SEISHOKU [Concomitant]
     Active Substance: SODIUM CHLORIDE
     Indication: BLOOD PRESSURE DECREASED
     Dosage: 45ML, 3.5ML/H
     Route: 041
     Dates: start: 20191121, end: 20191125
  14. ATORVASTATIN [Concomitant]
     Active Substance: ATORVASTATIN
     Indication: DYSLIPIDAEMIA
     Dosage: 5 MG, EVERYDAY(MORNING)
     Route: 048
  15. ALFACALCIDOL [Concomitant]
     Active Substance: ALFACALCIDOL
     Dosage: 0.5 UG, EVERYDAY
     Route: 048
     Dates: end: 20190320
  16. TAKECAB [Concomitant]
     Active Substance: VONOPRAZAN FUMARATE
     Indication: PROPHYLAXIS
     Dosage: 10 MG, EVERYDAY(MORNING)
     Route: 048
  17. PRECIPITATED CALCIUM CARBONATE [Concomitant]
     Active Substance: CALCIUM CARBONATE
     Dosage: 1000 MG, Q12H(MORNING, EVENING)
     Route: 048
  18. ALFACALCIDOL [Concomitant]
     Active Substance: ALFACALCIDOL
     Dosage: 0.5 MICROGRAM, QD
     Route: 048
     Dates: end: 20190320

REACTIONS (4)
  - Post procedural sepsis [Fatal]
  - Aortic valve stenosis [Recovered/Resolved]
  - Serratia infection [Fatal]
  - Disseminated intravascular coagulation [Recovering/Resolving]

NARRATIVE: CASE EVENT DATE: 20190715
